FAERS Safety Report 24898957 (Version 1)
Quarter: 2025Q1

REPORT INFORMATION
  Report Type: Spontaneous
  Country: US (occurrence: None)
  Receive Date: 20250128
  Receipt Date: 20250128
  Transmission Date: 20250409
  Serious: Yes (Death)
  Sender: FDA-CTU
  Company Number: None

PATIENT
  Age: 66 Year
  Sex: Male
  Weight: 64.41 kg

DRUGS (2)
  1. TACROLIMUS [Suspect]
     Active Substance: TACROLIMUS
     Indication: Liver transplant
     Dosage: 9 MG BID ORAL
     Route: 048
     Dates: start: 20240829, end: 20250128
  2. JAKAFI [Concomitant]
     Active Substance: RUXOLITINIB

REACTIONS (1)
  - Death [None]

NARRATIVE: CASE EVENT DATE: 20250128
